FAERS Safety Report 9506741 (Version 11)
Quarter: 2015Q1

REPORT INFORMATION
  Report Type: Spontaneous
  Country: US (occurrence: US)
  Receive Date: 20130908
  Receipt Date: 20150129
  Transmission Date: 20150721
  Serious: Yes (Hospitalization, Disabling)
  Sender: FDA-Public Use
  Company Number: US-SANOFI-AVENTIS-2013SA088370

PATIENT
  Age: 70 Year
  Sex: Female
  Weight: 104.32 kg

DRUGS (42)
  1. PLAVIX [Suspect]
     Active Substance: CLOPIDOGREL BISULFATE
     Indication: ARTERIAL OCCLUSIVE DISEASE
     Route: 048
  2. PAROXETINE [Concomitant]
     Active Substance: PAROXETINE\PAROXETINE HYDROCHLORIDE
  3. RAMIPRIL. [Concomitant]
     Active Substance: RAMIPRIL
  4. ESOMEPRAZOLE [Concomitant]
     Active Substance: ESOMEPRAZOLE
     Route: 048
  5. NITROQUICK [Concomitant]
     Active Substance: NITROGLYCERIN
  6. FUROSEMIDE. [Concomitant]
     Active Substance: FUROSEMIDE
  7. NOVOLIN [Concomitant]
     Active Substance: INSULIN HUMAN
     Dosage: 70/30 MG
  8. VICODIN [Concomitant]
     Active Substance: ACETAMINOPHEN\HYDROCODONE BITARTRATE
  9. FLAGYL [Concomitant]
     Active Substance: METRONIDAZOLE\METRONIDAZOLE HYDROCHLORIDE
  10. CENTRUM SILVER [Concomitant]
     Active Substance: VITAMINS
  11. HYDROCODONE [Concomitant]
     Active Substance: HYDROCODONE
     Dosage: 5/500 AND 7.5/500 MG
  12. ISOSORBIDE [Concomitant]
     Active Substance: ISOSORBIDE
  13. CYANOCOBALAMIN. [Concomitant]
     Active Substance: CYANOCOBALAMIN
     Route: 048
  14. ALBUTEROL. [Concomitant]
     Active Substance: ALBUTEROL
     Dosage: SPRAY
  15. RANITIDINE [Concomitant]
     Active Substance: RANITIDINE\RANITIDINE HYDROCHLORIDE
  16. GEMFIBROZIL. [Concomitant]
     Active Substance: GEMFIBROZIL
  17. FIORICET [Concomitant]
     Active Substance: ACETAMINOPHEN\BUTALBITAL\CAFFEINE
     Indication: HEADACHE
  18. ACETAMINOPHEN. [Concomitant]
     Active Substance: ACETAMINOPHEN
  19. GENTAMICIN. [Concomitant]
     Active Substance: GENTAMICIN
  20. ASPIRIN. [Concomitant]
     Active Substance: ASPIRIN
  21. GLYBURIDE. [Concomitant]
     Active Substance: GLYBURIDE
  22. KLOR-CON [Concomitant]
     Active Substance: POTASSIUM CHLORIDE
  23. GABAPENTIN. [Concomitant]
     Active Substance: GABAPENTIN
  24. VENTOLINE [Concomitant]
     Active Substance: ALBUTEROL
  25. ATENOLOL. [Concomitant]
     Active Substance: ATENOLOL
  26. LASIX [Concomitant]
     Active Substance: FUROSEMIDE
  27. LORATADINE. [Concomitant]
     Active Substance: LORATADINE
  28. ALTACE [Concomitant]
     Active Substance: RAMIPRIL
  29. PROTONIX [Concomitant]
     Active Substance: PANTOPRAZOLE SODIUM
  30. ECOTRIN [Concomitant]
     Active Substance: ASPIRIN
  31. POTASSIUM CHLORIDE. [Concomitant]
     Active Substance: POTASSIUM CHLORIDE
  32. PLAVIX [Suspect]
     Active Substance: CLOPIDOGREL BISULFATE
     Indication: ARTERIAL OCCLUSIVE DISEASE
     Route: 048
     Dates: start: 200506
  33. METOPROLOL [Concomitant]
     Active Substance: METOPROLOL
  34. LIPITOR [Concomitant]
     Active Substance: ATORVASTATIN CALCIUM
  35. NEXIUM [Concomitant]
     Active Substance: ESOMEPRAZOLE MAGNESIUM
  36. NORTRIPTYLINE [Concomitant]
     Active Substance: NORTRIPTYLINE
  37. HYDROXYZINE [Concomitant]
     Active Substance: HYDROXYZINE\HYDROXYZINE HYDROCHLORIDE
  38. NITROGLYCERINE [Concomitant]
     Active Substance: NITROGLYCERIN
     Route: 060
  39. CIPRO [Concomitant]
     Active Substance: CIPROFLOXACIN HYDROCHLORIDE
  40. VITAMINS WITH MINERALS [Concomitant]
     Active Substance: MINERALS\VITAMINS
  41. PANTHENOL/RETINOL/THIAMINE HYDROCHLORIDE/ASCORBIC ACID/ERGOCALCIFEROL/FOLIC ACID/RIBOFLAVIN/NICOTINA [Concomitant]
  42. CRESTOR [Concomitant]
     Active Substance: ROSUVASTATIN CALCIUM

REACTIONS (4)
  - Injury [Unknown]
  - Physical disability [Unknown]
  - Gastrointestinal haemorrhage [Unknown]
  - Pain [Unknown]
